FAERS Safety Report 10344509 (Version 1)
Quarter: 2014Q3

REPORT INFORMATION
  Report Type: Report from Study
  Country: TH (occurrence: TH)
  Receive Date: 20140728
  Receipt Date: 20140728
  Transmission Date: 20150326
  Serious: Yes (Death, Other)
  Sender: FDA-Public Use
  Company Number: PHHY2014TH092043

PATIENT
  Sex: Male

DRUGS (1)
  1. TASIGNA [Suspect]
     Active Substance: NILOTINIB
     Indication: CHRONIC MYELOID LEUKAEMIA
     Dosage: 400 MG, BID
     Route: 048

REACTIONS (10)
  - Neutrophil count decreased [Unknown]
  - Protein urine present [Recovered/Resolved]
  - Nephrotic syndrome [Recovered/Resolved]
  - Pallor [Unknown]
  - Fatigue [Unknown]
  - Oedema [Unknown]
  - White blood cell count decreased [Unknown]
  - Gait disturbance [Unknown]
  - Death [Fatal]
  - Platelet count decreased [Unknown]
